FAERS Safety Report 18657664 (Version 2)
Quarter: 2021Q1

REPORT INFORMATION
  Report Type: Spontaneous
  Country: JP (occurrence: JP)
  Receive Date: 20201224
  Receipt Date: 20210107
  Transmission Date: 20210419
  Serious: Yes (Other)
  Sender: FDA-Public Use
  Company Number: JP-TEVA-2020-JP-1861044

PATIENT
  Age: 5 Year
  Sex: Male

DRUGS (6)
  1. SULFADIAZINE. [Suspect]
     Active Substance: SULFADIAZINE
     Indication: EYE INFECTION TOXOPLASMAL
     Dosage: 100 MG/KG DAILY;
     Route: 065
  2. PYRIMETHAMINE [Suspect]
     Active Substance: PYRIMETHAMINE
     Indication: EYE INFECTION TOXOPLASMAL
     Dosage: 1 MG/KG DAILY;
     Route: 065
  3. CALCIUM FOLINATE [Concomitant]
     Active Substance: LEUCOVORIN CALCIUM
     Indication: EYE INFECTION TOXOPLASMAL
     Dosage: THREE TIMES A WEEK
     Route: 065
  4. CLINDAMYCIN. [Suspect]
     Active Substance: CLINDAMYCIN
     Indication: EYE INFECTION TOXOPLASMAL
     Dosage: 20 MG/KG DAILY;
     Route: 065
  5. PYRIMETHAMINE [Suspect]
     Active Substance: PYRIMETHAMINE
     Dosage: 2 MG/KG DAILY; LOADING DOSE: 2MG/KG/DAY DURING FIRST 2 DAYS
     Route: 065
  6. PREDNISOLONE. [Concomitant]
     Active Substance: PREDNISOLONE
     Indication: EYE INFECTION TOXOPLASMAL
     Dosage: 1 MG/KG DAILY;
     Route: 065

REACTIONS (3)
  - Drug hypersensitivity [Recovered/Resolved]
  - Liver injury [Recovering/Resolving]
  - Off label use [Unknown]
